FAERS Safety Report 13017671 (Version 2)
Quarter: 2017Q1

REPORT INFORMATION
  Report Type: Report from Study
  Country: CA (occurrence: CA)
  Receive Date: 20161212
  Receipt Date: 20170214
  Transmission Date: 20170428
  Serious: Yes (Death, Hospitalization)
  Sender: FDA-Public Use
  Company Number: CA-JNJFOC-20161208844

PATIENT
  Age: 74 Year
  Sex: Female

DRUGS (1)
  1. SIMPONI [Suspect]
     Active Substance: GOLIMUMAB
     Indication: PSORIATIC ARTHROPATHY
     Route: 058
     Dates: start: 20150304

REACTIONS (6)
  - Gastrooesophageal reflux disease [Unknown]
  - Pseudomonas infection [Unknown]
  - Neutropenia [Unknown]
  - Staphylococcal infection [Unknown]
  - Intervertebral disc degeneration [Unknown]
  - Septic shock [Fatal]

NARRATIVE: CASE EVENT DATE: 20160727
